FAERS Safety Report 10960933 (Version 2)
Quarter: 2015Q2

REPORT INFORMATION
  Report Type: Spontaneous
  Country: US (occurrence: US)
  Receive Date: 20150327
  Receipt Date: 20150402
  Transmission Date: 20150821
  Serious: Yes (Other)
  Sender: FDA-Public Use
  Company Number: US-TEVA-549874USA

PATIENT
  Sex: Female

DRUGS (1)
  1. HYDROCHLOROTHIAZIDE. [Suspect]
     Active Substance: HYDROCHLOROTHIAZIDE

REACTIONS (6)
  - Tinnitus [Unknown]
  - Blood calcium increased [Unknown]
  - Hypertension [Unknown]
  - Drug ineffective [Unknown]
  - Osteitis deformans [Unknown]
  - Product physical issue [Unknown]
